FAERS Safety Report 5955870-2 (Version None)
Quarter: 2008Q4

REPORT INFORMATION
  Report Type: 
  Country: None (occurrence: None)
  Receive Date: 20081112
  Receipt Date: 20081103
  Transmission Date: 20090506
  Serious: Yes (Other)
  Sender: FDA-Public Use
  Company Number: 2008SP020311

PATIENT
  Age: 47 Year
  Sex: Male
  Weight: 81.6475 kg

DRUGS (6)
  1. INTRON A [Suspect]
     Indication: HEPATITIS C
  2. PEG-INTRON [Suspect]
     Indication: HEPATITIS C
     Dosage: SC
     Route: 058
  3. RIBAVIRIN [Suspect]
     Indication: HEPATITIS C
     Dosage: PO
     Route: 048
  4. PEGASYS [Suspect]
     Indication: HEPATITIS C
  5. THIAMINE HCL [Concomitant]
  6. IMODIUM [Concomitant]

REACTIONS (6)
  - CHILLS [None]
  - HYPERHIDROSIS [None]
  - HYPOTHYROIDISM [None]
  - MIGRAINE [None]
  - PYREXIA [None]
  - WEIGHT DECREASED [None]
